FAERS Safety Report 4918768-4 (Version None)
Quarter: 2006Q1

REPORT INFORMATION
  Report Type: 
  Country: None (occurrence: None)
  Receive Date: 20060222
  Receipt Date: 20060214
  Transmission Date: 20060701
  Serious: Yes (Other)
  Sender: FDA-Public Use
  Company Number: US-JNJFOC-20060203491

PATIENT
  Age: 24 Year
  Sex: Female
  Weight: 52.16 kg

DRUGS (1)
  1. ORTHO EVRA [Suspect]
     Indication: CONTRACEPTION
     Route: 062
     Dates: start: 20050713, end: 20050801

REACTIONS (3)
  - ABORTION SPONTANEOUS [None]
  - DIZZINESS [None]
  - HEADACHE [None]
